FAERS Safety Report 18566569 (Version 1)
Quarter: 2020Q4

REPORT INFORMATION
  Report Type: Report from Study
  Country: US (occurrence: US)
  Receive Date: 20201201
  Receipt Date: 20201201
  Transmission Date: 20210114
  Serious: No
  Sender: FDA-Public Use
  Company Number: NVSC2020US315545

PATIENT
  Sex: Female

DRUGS (3)
  1. KESIMPTA [Suspect]
     Active Substance: OFATUMUMAB
     Indication: RELAPSING MULTIPLE SCLEROSIS
     Dosage: 20 MG, QMO (BENEATH THE SKIN USUALLY VIA INJECION)
     Route: 058
  2. KESIMPTA [Suspect]
     Active Substance: OFATUMUMAB
     Indication: CLINICALLY ISOLATED SYNDROME
  3. KESIMPTA [Suspect]
     Active Substance: OFATUMUMAB
     Indication: PROGRESSIVE MULTIPLE SCLEROSIS

REACTIONS (2)
  - Cerebral disorder [Unknown]
  - Pain [Recovered/Resolved]

NARRATIVE: CASE EVENT DATE: 20201108
